FAERS Safety Report 11800983 (Version 1)
Quarter: 2015Q4

REPORT INFORMATION
  Report Type: Spontaneous
  Country: GB (occurrence: GB)
  Receive Date: 20151204
  Receipt Date: 20151204
  Transmission Date: 20160305
  Serious: Yes (Other)
  Sender: FDA-Public Use
  Company Number: GB-DRREDDYS-GER/UKI/15/0054385

PATIENT
  Age: 82 Year
  Sex: Female
  Weight: 57.15 kg

DRUGS (1)
  1. TERBINAFINE 250MG TABLETS [Suspect]
     Active Substance: TERBINAFINE
     Indication: LOCALISED INFECTION
     Route: 048
     Dates: start: 20151007, end: 20151102

REACTIONS (5)
  - Pruritus generalised [Not Recovered/Not Resolved]
  - Skin warm [Not Recovered/Not Resolved]
  - Hypersensitivity [Not Recovered/Not Resolved]
  - Skin tightness [Not Recovered/Not Resolved]
  - Generalised erythema [Not Recovered/Not Resolved]

NARRATIVE: CASE EVENT DATE: 20151007
